FAERS Safety Report 13387945 (Version 3)
Quarter: 2024Q4

REPORT INFORMATION
  Report Type: Spontaneous
  Country: ES (occurrence: ES)
  Receive Date: 20170330
  Receipt Date: 20241121
  Transmission Date: 20250114
  Serious: Yes (Other)
  Sender: GILEAD
  Company Number: ES-GILEAD-2017-0263911

PATIENT
  Age: 33 Year
  Sex: Male

DRUGS (2)
  1. STRIBILD [Interacting]
     Active Substance: COBICISTAT\ELVITEGRAVIR\EMTRICITABINE\TENOFOVIR DISOPROXIL FUMARATE
     Indication: HIV infection
     Dosage: 1 DF, UNK
     Route: 065
     Dates: start: 201411
  2. ACETAMINOPHEN\CAFFEINE\ERGOTAMINE TARTRATE [Interacting]
     Active Substance: ACETAMINOPHEN\CAFFEINE\ERGOTAMINE TARTRATE
     Indication: Headache
     Dosage: 100 MG/1 MG/300 MG, QD
     Route: 065

REACTIONS (3)
  - Ergot poisoning [Recovering/Resolving]
  - Peripheral ischaemia [Recovering/Resolving]
  - Drug interaction [Recovering/Resolving]
